FAERS Safety Report 4572030-0 (Version None)
Quarter: 2005Q1

REPORT INFORMATION
  Report Type: 
  Country: None (occurrence: None)
  Receive Date: 20050202
  Receipt Date: 20050120
  Transmission Date: 20050727
  Serious: Yes (Hospitalization, Other)
  Sender: FDA-Public Use
  Company Number: 2005018013

PATIENT
  Age: 45 Year
  Sex: Female

DRUGS (1)
  1. RELPAX [Suspect]
     Indication: MIGRAINE
     Dosage: (40 MG,)

REACTIONS (3)
  - CARDIAC DISORDER [None]
  - CHEST PAIN [None]
  - OESOPHAGEAL SPASM [None]
